FAERS Safety Report 4642413-9 (Version None)
Quarter: 2005Q2

REPORT INFORMATION
  Report Type: 
  Country: None (occurrence: None)
  Receive Date: 20050420
  Receipt Date: 20050404
  Transmission Date: 20051028
  Serious: Yes (Other)
  Sender: FDA-Public Use
  Company Number: GBS050417053

PATIENT
  Age: 40 Year
  Sex: Female
  Weight: 119 kg

DRUGS (3)
  1. YENTREVE (DULOXETINE HYDROCHLORIDE) [Suspect]
     Indication: STRESS INCONTINENCE
     Dosage: 40 MG
     Dates: start: 20050307, end: 20050307
  2. DETRUSITOL (TOLTERODINE L-TARTRATE) [Concomitant]
  3. PANTOPRAZOLE [Concomitant]

REACTIONS (5)
  - DRY MOUTH [None]
  - FEELING ABNORMAL [None]
  - NAUSEA [None]
  - PARAESTHESIA ORAL [None]
  - VOMITING [None]
